FAERS Safety Report 18577055 (Version 1)
Quarter: 2020Q4

REPORT INFORMATION
  Report Type: Other
  Country: FR (occurrence: FR)
  Receive Date: 20201203
  Receipt Date: 20201203
  Transmission Date: 20210114
  Serious: Yes (Death)
  Sender: FDA-Public Use
  Company Number: FR-GENUS_LIFESCIENCES-USA-POI0580202000221

PATIENT
  Age: 9 Year
  Sex: Female
  Weight: 30 kg

DRUGS (1)
  1. HYDROCODONE BITARTRATE AND ACETAMINOPHEN ORAL SOLUTION [Suspect]
     Active Substance: ACETAMINOPHEN\HYDROCODONE BITARTRATE
     Indication: ORAL PAIN
     Dosage: 4 TOTAL DOSES
     Dates: start: 2020, end: 2020

REACTIONS (1)
  - Acute hepatic failure [Fatal]

NARRATIVE: CASE EVENT DATE: 2020
